FAERS Safety Report 7359802-4 (Version None)
Quarter: 2011Q1

REPORT INFORMATION
  Report Type: 
  Country: None (occurrence: None)
  Receive Date: 20110317
  Receipt Date: 20110304
  Transmission Date: 20110831
  Serious: Yes (Hospitalization)
  Sender: FDA-Public Use
  Company Number: IN-GENENTECH-315027

PATIENT
  Age: 39 Year
  Sex: Male

DRUGS (1)
  1. XOLAIR [Suspect]
     Indication: ASTHMA
     Dosage: 1200 MG, 1/MONTH
     Dates: start: 20110301

REACTIONS (2)
  - BLOOD IMMUNOGLOBULIN E INCREASED [None]
  - RASH [None]
